FAERS Safety Report 21157738 (Version 1)
Quarter: 2022Q3

REPORT INFORMATION
  Report Type: Spontaneous
  Country: US (occurrence: None)
  Receive Date: 20220731
  Receipt Date: 20220731
  Transmission Date: 20221027
  Serious: Yes (Life-Threatening, Hospitalization)
  Sender: FDA-Public Use
  Company Number: None

PATIENT
  Age: 46 Year
  Sex: Male
  Weight: 92.2 kg

DRUGS (5)
  1. ROCURONIUM [Suspect]
     Active Substance: ROCURONIUM BROMIDE
     Indication: Surgery
     Route: 042
     Dates: start: 20220425, end: 20220425
  2. PROPOFOL [Concomitant]
     Active Substance: PROPOFOL
     Dates: start: 20220425, end: 20220425
  3. MIDAZOLAM [Concomitant]
     Active Substance: MIDAZOLAM
     Dates: start: 20220425, end: 20220425
  4. KETAMINE [Concomitant]
     Active Substance: KETAMINE
     Dates: start: 20220425, end: 20220425
  5. FENTANYL [Concomitant]
     Active Substance: FENTANYL
     Dates: start: 20220425, end: 20220426

REACTIONS (4)
  - Hypotension [None]
  - Hypoxia [None]
  - Bronchospasm [None]
  - Anaphylactic reaction [None]

NARRATIVE: CASE EVENT DATE: 20220425
